FAERS Safety Report 10286795 (Version 1)
Quarter: 2014Q3

REPORT INFORMATION
  Report Type: Report from Study
  Country: TR (occurrence: TR)
  Receive Date: 20140709
  Receipt Date: 20140709
  Transmission Date: 20150326
  Serious: Yes (Other)
  Sender: FDA-Public Use
  Company Number: TR-PFIZER INC-2014184939

PATIENT
  Age: 22 Year
  Sex: Male

DRUGS (1)
  1. AMPICILLIN SODIUM/SULBACTAM SODIUM [Suspect]
     Active Substance: AMPICILLIN SODIUM\SULBACTAM SODIUM
     Indication: SINUSITIS
     Dosage: UNK

REACTIONS (4)
  - Enterocolitis haemorrhagic [Recovered/Resolved]
  - Clostridium difficile colitis [None]
  - Clostridium test positive [None]
  - Klebsiella test positive [None]
